FAERS Safety Report 9376619 (Version 1)
Quarter: 2013Q2

REPORT INFORMATION
  Report Type: Spontaneous
  Country: US (occurrence: None)
  Receive Date: 20130628
  Receipt Date: 20130628
  Transmission Date: 20140414
  Serious: No
  Sender: FDA-Public Use
  Company Number: None

PATIENT
  Age: 61 Year
  Sex: Female
  Weight: 72.58 kg

DRUGS (9)
  1. ATORVASTATIN CALCIUM [Suspect]
     Route: 048
     Dates: start: 20130605, end: 20130609
  2. VALSARTAN [Concomitant]
  3. RESTATSIS [Concomitant]
  4. ALPAHGAN [Concomitant]
  5. LATANPROST [Concomitant]
  6. MULTI-VITAMIN [Concomitant]
  7. CALCIUM [Concomitant]
  8. GLUCOSAMINE [Concomitant]
  9. FLAXSEED OIL [Concomitant]

REACTIONS (3)
  - Dizziness [None]
  - Loss of consciousness [None]
  - Dizziness [None]
